FAERS Safety Report 9324589 (Version 1)
Quarter: 2013Q2

REPORT INFORMATION
  Report Type: Other
  Country: GB (occurrence: GB)
  Receive Date: 20130603
  Receipt Date: 20130603
  Transmission Date: 20140414
  Serious: Yes (Other)
  Sender: FDA-Public Use
  Company Number: GB-ACTAVIS-2013-09240

PATIENT
  Sex: Male

DRUGS (3)
  1. GABAPENTIN (UNKNOWN) [Suspect]
     Indication: CONVULSION
     Dosage: 400 MG, FOUR TIMES DAILY
     Route: 065
  2. GABAPENTIN (UNKNOWN) [Suspect]
     Indication: CHEST PAIN
     Dosage: 800 MG, FOUR TIMES DAILY
     Route: 065
  3. GABAPENTIN (UNKNOWN) [Suspect]
     Dosage: 1200 MG, FOUR TIMES DAILY
     Route: 065

REACTIONS (4)
  - Balance disorder [Unknown]
  - Feeling abnormal [Unknown]
  - Disturbance in attention [Unknown]
  - Muscle spasms [Unknown]
